FAERS Safety Report 22236274 (Version 3)
Quarter: 2023Q4

REPORT INFORMATION
  Report Type: Report from Study
  Country: CA (occurrence: CA)
  Receive Date: 20230420
  Receipt Date: 20231025
  Transmission Date: 20240109
  Serious: Yes (Hospitalization)
  Sender: FDA-Public Use
  Company Number: CA-VER-202300069

PATIENT
  Age: 84 Year
  Sex: Male

DRUGS (8)
  1. TRIPTORELIN PAMOATE [Suspect]
     Active Substance: TRIPTORELIN PAMOATE
     Indication: Prostate cancer
     Dosage: (11.25 MG)
     Route: 030
  2. TRIPTORELIN PAMOATE [Suspect]
     Active Substance: TRIPTORELIN PAMOATE
     Indication: Prostate cancer
     Dosage: (11.25 MG)
     Route: 030
     Dates: start: 20230411, end: 20230411
  3. TRIPTORELIN PAMOATE [Suspect]
     Active Substance: TRIPTORELIN PAMOATE
     Indication: Prostate cancer
     Dosage: (11.25 MG)
     Route: 030
     Dates: start: 20230705, end: 20230705
  4. TRIPTORELIN PAMOATE [Suspect]
     Active Substance: TRIPTORELIN PAMOATE
     Indication: Prostate cancer
     Dosage: (11.25 MG)
     Route: 030
     Dates: start: 20211230, end: 20211230
  5. TRIPTORELIN PAMOATE [Suspect]
     Active Substance: TRIPTORELIN PAMOATE
     Indication: Prostate cancer
     Dosage: (11.25 MG)
     Route: 030
     Dates: start: 20220404, end: 20220404
  6. TRIPTORELIN PAMOATE [Suspect]
     Active Substance: TRIPTORELIN PAMOATE
     Indication: Prostate cancer
     Dosage: (11.25 MG)
     Route: 030
     Dates: start: 20220705, end: 20220705
  7. TRIPTORELIN PAMOATE [Suspect]
     Active Substance: TRIPTORELIN PAMOATE
     Indication: Prostate cancer
     Dosage: (11.25 MG)
     Route: 030
     Dates: start: 20221004, end: 20221004
  8. TRIPTORELIN PAMOATE [Suspect]
     Active Substance: TRIPTORELIN PAMOATE
     Indication: Prostate cancer
     Dosage: (11.25 MG)
     Route: 030
     Dates: start: 20230104, end: 20230104

REACTIONS (4)
  - Vascular graft [Unknown]
  - COVID-19 [Unknown]
  - Blood pressure systolic increased [Unknown]
  - Nasopharyngitis [Unknown]
